FAERS Safety Report 20068035 (Version 1)
Quarter: 2021Q4

REPORT INFORMATION
  Report Type: Spontaneous
  Country: JP (occurrence: JP)
  Receive Date: 20211115
  Receipt Date: 20211115
  Transmission Date: 20220303
  Serious: Yes (Hospitalization)
  Sender: FDA-Public Use
  Company Number: JP-LUPIN PHARMACEUTICALS INC.-2021-22160

PATIENT
  Age: 49 Year
  Sex: Female

DRUGS (10)
  1. BETAMETHASONE [Suspect]
     Active Substance: BETAMETHASONE
     Indication: Deafness neurosensory
     Dosage: 3 MILLIGRAM
     Route: 048
  2. BETAMETHASONE [Suspect]
     Active Substance: BETAMETHASONE
     Dosage: 1 MILLIGRAM
     Route: 048
  3. HYDROCORTISONE [Suspect]
     Active Substance: HYDROCORTISONE
     Indication: Deafness neurosensory
     Dosage: 300 MILLIGRAM
     Route: 042
  4. HYDROCORTISONE [Suspect]
     Active Substance: HYDROCORTISONE
     Dosage: 200 MILLIGRAM
     Route: 042
  5. HYDROCORTISONE [Suspect]
     Active Substance: HYDROCORTISONE
     Dosage: 100 MILLIGRAM
     Route: 042
  6. PREDNISOLONE [Suspect]
     Active Substance: PREDNISOLONE
     Indication: Deafness neurosensory
     Dosage: 60 MILLIGRAM; ADMINISTERED ON DAYS 1 TO 3
     Route: 042
  7. ISOSORBIDE [Suspect]
     Active Substance: ISOSORBIDE
     Indication: Deafness neurosensory
     Dosage: 60 MILLILITER, QD
     Route: 048
  8. ISOSORBIDE [Suspect]
     Active Substance: ISOSORBIDE
     Dosage: UNK, (ALSO GIVEN FROM DAYS 25 TO 39)
     Route: 048
  9. IRON [Concomitant]
     Active Substance: IRON
     Indication: Iron deficiency anaemia
     Dosage: UNK, (TABLET)
     Route: 048
  10. IRON [Concomitant]
     Active Substance: IRON
     Dosage: UNK, (IRON SUCROSE INJECTIONS)
     Route: 048

REACTIONS (2)
  - Drug ineffective [Unknown]
  - Drug ineffective for unapproved indication [None]
